FAERS Safety Report 8886048 (Version 4)
Quarter: 2013Q4

REPORT INFORMATION
  Report Type: Report from Study
  Country: DE (occurrence: DE)
  Receive Date: 20121105
  Receipt Date: 20131112
  Transmission Date: 20140711
  Serious: Yes (Life-Threatening, Hospitalization)
  Sender: FDA-Public Use
  Company Number: DE-PFIZER INC-2012271582

PATIENT
  Age: 35 Year
  Sex: Female
  Weight: 59 kg

DRUGS (6)
  1. GEMTUZUMAB OZOGAMICIN [Suspect]
     Indication: ACUTE MYELOID LEUKAEMIA
     Dosage: 418 MG, 1X/DAY
     Dates: start: 20121015, end: 20121015
  2. IDARUBICIN HCL [Suspect]
     Indication: ACUTE MYELOID LEUKAEMIA
     Dosage: 18 MG, 1X/DAY
     Dates: start: 20121013, end: 20121015
  3. CYTARABINE [Suspect]
     Indication: ACUTE MYELOID LEUKAEMIA
     Dosage: 160 MG, 1X/DAY
     Dates: start: 20121013, end: 20121017
  4. ETOPOSIDE [Suspect]
     Indication: ACUTE MYELOID LEUKAEMIA
     Dosage: 160 MG, 1X/DAY
     Dates: start: 20121013, end: 20121015
  5. TRETINOIN [Suspect]
     Indication: ACUTE MYELOID LEUKAEMIA
     Dosage: 70 MG, 1X/DAY
     Dates: start: 20121018, end: 20121020
  6. TRETINOIN [Suspect]
     Dosage: 20 MG, 1X/DAY
     Dates: start: 20121021, end: 20121024

REACTIONS (1)
  - Pneumonia [Recovered/Resolved]
